FAERS Safety Report 7102883-3 (Version None)
Quarter: 2010Q4

REPORT INFORMATION
  Report Type: 
  Country: None (occurrence: None)
  Receive Date: 20101115
  Receipt Date: 20101102
  Transmission Date: 20110411
  Serious: Yes (Other)
  Sender: FDA-Public Use
  Company Number: US-ELI_LILLY_AND_COMPANY-US200911005399

PATIENT
  Sex: Female

DRUGS (6)
  1. FORTEO [Suspect]
     Indication: OSTEOPOROSIS
     Dosage: 20 UG, DAILY (1/D)
     Route: 058
     Dates: start: 20090601, end: 20091201
  2. FORTEO [Suspect]
     Dosage: 20 UG, DAILY (1/D)
     Dates: start: 20090601, end: 20091201
  3. CARBIDOPA AND LEVODOPA [Concomitant]
     Dosage: 1 D/F, EVERY 3 HRS
  4. CARBIDOPA AND LEVODOPA [Concomitant]
     Dosage: 1 D/F, EACH MORNING
  5. CARBIDOPA AND LEVODOPA [Concomitant]
     Dosage: 1 D/F, EACH EVENING
  6. MORPHINE [Concomitant]
     Indication: PAIN
     Dosage: UNK, AS NEEDED
     Route: 060

REACTIONS (10)
  - ARTHRALGIA [None]
  - BONE DISORDER [None]
  - FLATULENCE [None]
  - GAIT DISTURBANCE [None]
  - GASTROOESOPHAGEAL REFLUX DISEASE [None]
  - JOINT SWELLING [None]
  - OEDEMA PERIPHERAL [None]
  - PAIN IN EXTREMITY [None]
  - SURGERY [None]
  - TREMOR [None]
